FAERS Safety Report 13876831 (Version 1)
Quarter: 2017Q3

REPORT INFORMATION
  Report Type: Spontaneous
  Country: US (occurrence: None)
  Receive Date: 20170814
  Receipt Date: 20170814
  Transmission Date: 20171127
  Serious: No
  Sender: FDA-Public Use
  Company Number: None

PATIENT
  Age: 66 Year
  Sex: Female
  Weight: 63.05 kg

DRUGS (2)
  1. ADRENALIN [Suspect]
     Active Substance: EPINEPHRINE
     Indication: CATARACT OPERATION
     Dosage: DOSE - SHUGARCAINE MIXTURE
     Route: 031
     Dates: start: 20170710, end: 20170801
  2. ADRENALIN [Suspect]
     Active Substance: EPINEPHRINE
     Indication: CATARACT
     Dosage: DOSE - SHUGARCAINE MIXTURE
     Route: 031
     Dates: start: 20170710, end: 20170801

REACTIONS (4)
  - Visual acuity reduced [None]
  - Post procedural complication [None]
  - Corneal oedema [None]
  - Intraocular pressure increased [None]

NARRATIVE: CASE EVENT DATE: 20170710
